FAERS Safety Report 5958307-2 (Version None)
Quarter: 2008Q4

REPORT INFORMATION
  Report Type: 
  Country: None (occurrence: None)
  Receive Date: 20081107
  Receipt Date: 20081023
  Transmission Date: 20090506
  Serious: Yes (Death, Hospitalization)
  Sender: FDA-Public Use
  Company Number: 2008BI023936

PATIENT
  Age: 45 Year
  Sex: Female

DRUGS (3)
  1. TYSABRI [Suspect]
     Indication: MULTIPLE SCLEROSIS
     Dosage: 300 MG;QM;IV
     Route: 042
     Dates: start: 20070410, end: 20080624
  2. CON MEDS [Concomitant]
  3. AVONEX [Concomitant]

REACTIONS (12)
  - BLOOD ELECTROLYTES ABNORMAL [None]
  - DECUBITUS ULCER [None]
  - HYPOTENSION [None]
  - INFECTED SKIN ULCER [None]
  - MALNUTRITION [None]
  - NO THERAPEUTIC RESPONSE [None]
  - OSTEOMYELITIS [None]
  - PULMONARY OEDEMA [None]
  - SEPSIS [None]
  - STRESS CARDIOMYOPATHY [None]
  - TACHYCARDIA [None]
  - VICTIM OF SPOUSAL ABUSE [None]
